FAERS Safety Report 7738059-6 (Version None)
Quarter: 2011Q3

REPORT INFORMATION
  Report Type: 
  Country: None (occurrence: None)
  Receive Date: 20110908
  Receipt Date: 20110831
  Transmission Date: 20111222
  Serious: Yes (Hospitalization)
  Sender: FDA-Public Use
  Company Number: NL-ABBOTT-11P-114-0851908-00

PATIENT
  Sex: Female
  Weight: 60 kg

DRUGS (5)
  1. HUMIRA [Suspect]
  2. HUMIRA [Suspect]
     Route: 058
     Dates: start: 20110616
  3. HUMIRA [Suspect]
     Indication: PSORIATIC ARTHROPATHY
     Route: 058
     Dates: start: 20060601, end: 20081101
  4. OMEPRAZOLE [Concomitant]
     Indication: PROPHYLAXIS
     Dosage: ENTERIC-COATED CAPSULE
     Route: 048
     Dates: start: 20110601
  5. OMEPRAZOLE [Concomitant]
     Indication: GASTRIC DISORDER

REACTIONS (6)
  - SCIATICA [None]
  - FALL [None]
  - UTERINE PROLAPSE [None]
  - DIZZINESS [None]
  - HEADACHE [None]
  - NAUSEA [None]
